FAERS Safety Report 8519014-5 (Version None)
Quarter: 2012Q3

REPORT INFORMATION
  Report Type: 
  Country: None (occurrence: None)
  Receive Date: 20120718
  Receipt Date: 20120713
  Transmission Date: 20120928
  Serious: Yes (Hospitalization)
  Sender: FDA-Public Use
  Company Number: JP-B.I. PHARMACEUTICALS,INC./RIDGEFIELD-2012-BP-12745NB

PATIENT
  Sex: Female
  Weight: 45.4 kg

DRUGS (10)
  1. PRAMIPEXOLE DIHYDROCHLORIDE [Suspect]
     Dosage: 0.375 MG
     Route: 048
     Dates: start: 20120508, end: 20120530
  2. DEPAS [Concomitant]
     Dosage: 0.5 MG
     Route: 065
  3. SENNOSIDE [Concomitant]
     Indication: CONSTIPATION
     Dosage: 12 MG
     Route: 065
  4. MOTILIUM [Suspect]
     Indication: VOMITING
     Dosage: 10 MG
     Route: 048
     Dates: start: 20120402, end: 20120530
  5. OLMESARTAN MEDOXOMIL [Concomitant]
     Indication: HYPERTENSION
     Dosage: 20 MG
     Route: 065
  6. CARBIDOPA AND LEVODOPA [Concomitant]
     Indication: PARKINSON'S DISEASE
     Route: 065
     Dates: start: 20111205
  7. PRAMIPEXOLE DIHYDROCHLORIDE [Suspect]
     Indication: PARKINSON'S DISEASE
     Dosage: 0.25 MG
     Route: 048
     Dates: start: 20120312, end: 20120530
  8. CARVEDILOL [Concomitant]
     Indication: HYPERTENSION
     Dosage: 10 MG
     Route: 065
  9. GASMOTIN [Concomitant]
     Indication: VOMITING
     Dosage: 15 MG
     Route: 065
  10. SHAKUYAKUKANZOTO [Concomitant]
     Dosage: 3 G
     Route: 065
     Dates: end: 20120530

REACTIONS (2)
  - VOMITING [None]
  - LIVER DISORDER [None]
